FAERS Safety Report 8833969 (Version 1)
Quarter: 2012Q4

REPORT INFORMATION
  Report Type: Spontaneous
  Country: US (occurrence: None)
  Receive Date: 20121010
  Receipt Date: 20121010
  Transmission Date: 20130627
  Serious: Yes (Life-Threatening)
  Sender: FDA-Public Use
  Company Number: None

PATIENT
  Age: 52 Year
  Sex: Female
  Weight: 61.24 kg

DRUGS (1)
  1. VENLAFAXINE HCL [Suspect]
     Dosage: 1 pill once a day po
     Route: 048
     Dates: start: 20070101, end: 20120926

REACTIONS (4)
  - Cough [None]
  - Dyspnoea [None]
  - Chronic obstructive pulmonary disease [None]
  - Emphysema [None]
